FAERS Safety Report 5042146-3 (Version None)
Quarter: 2006Q2

REPORT INFORMATION
  Report Type: 
  Country: None (occurrence: None)
  Receive Date: 20060627
  Receipt Date: 20060609
  Transmission Date: 20061013
  Serious: Yes (Other)
  Sender: FDA-Public Use
  Company Number: US200605002113

PATIENT
  Age: 17 Year
  Sex: Female

DRUGS (4)
  1. HUMATROPE [Suspect]
     Indication: GROWTH HORMONE DEFICIENCY
     Dates: start: 19950920, end: 20060428
  2. SYNTHROID [Concomitant]
  3. PREMARIN [Concomitant]
  4. PROVERA [Concomitant]

REACTIONS (1)
  - BASAL CELL CARCINOMA [None]
